FAERS Safety Report 9426274 (Version 3)
Quarter: 2013Q3

REPORT INFORMATION
  Report Type: Spontaneous
  Country: BR (occurrence: BR)
  Receive Date: 20130730
  Receipt Date: 20130827
  Transmission Date: 20140515
  Serious: Yes (Other)
  Sender: FDA-Public Use
  Company Number: BR-ASTRAZENECA-2013SE56025

PATIENT
  Age: 19949 Day
  Sex: Male
  Weight: 90 kg

DRUGS (4)
  1. CRESTOR [Suspect]
     Indication: BLOOD CHOLESTEROL INCREASED
     Dosage: DAILY
     Route: 048
     Dates: start: 2012
  2. CRESTOR [Suspect]
     Indication: INFARCTION
     Dosage: DAILY
     Route: 048
     Dates: start: 2012
  3. LOSARTAN [Concomitant]
     Indication: INFARCTION
     Dates: start: 2012
  4. SOMALGIN [Concomitant]
     Indication: INFARCTION
     Dates: start: 2012

REACTIONS (1)
  - Vascular occlusion [Recovered/Resolved]
